FAERS Safety Report 5040593-7 (Version None)
Quarter: 2006Q2

REPORT INFORMATION
  Report Type: 
  Country: None (occurrence: None)
  Receive Date: 20060630
  Receipt Date: 20060619
  Transmission Date: 20061013
  Serious: Yes (Hospitalization)
  Sender: FDA-Public Use
  Company Number: FR-GILEAD-2006-0009794

PATIENT
  Sex: Male
  Weight: 58 kg

DRUGS (12)
  1. VIREAD [Suspect]
     Indication: HIV INFECTION
     Route: 048
     Dates: start: 20050613
  2. PROGRAF [Suspect]
     Indication: TRANSPLANT
     Route: 048
     Dates: start: 20050303, end: 20060514
  3. SUSTIVA [Suspect]
     Indication: HIV INFECTION
     Route: 048
     Dates: start: 20050420, end: 20060514
  4. ACTONEL [Concomitant]
  5. MOPRAL [Concomitant]
  6. AMARYL [Concomitant]
  7. DURAGESIC-100 [Concomitant]
  8. MORPHINE SULFATE [Concomitant]
  9. TARDYFERON [Concomitant]
  10. MOTILIUM [Concomitant]
  11. NELFINAVIR [Concomitant]
  12. COMBIVIR [Concomitant]

REACTIONS (1)
  - GYNAECOMASTIA [None]
